FAERS Safety Report 5035036-3 (Version None)
Quarter: 2006Q2

REPORT INFORMATION
  Report Type: 
  Country: None (occurrence: None)
  Receive Date: 20060622
  Receipt Date: 20060622
  Transmission Date: 20061013
  Serious: Yes (Other)
  Sender: FDA-Public Use
  Company Number: None

PATIENT
  Sex: Female
  Weight: 93.8946 kg

DRUGS (1)
  1. HYALAGEN [Suspect]
     Indication: OSTEOARTHRITIS
     Dosage: INTRA-ARTIC
     Route: 014
     Dates: start: 20060607, end: 20060614

REACTIONS (5)
  - ARTHRALGIA [None]
  - DIARRHOEA [None]
  - MUSCULOSKELETAL STIFFNESS [None]
  - NAUSEA [None]
  - OEDEMA PERIPHERAL [None]
